FAERS Safety Report 23434428 (Version 1)
Quarter: 2024Q1

REPORT INFORMATION
  Report Type: Spontaneous
  Country: US (occurrence: US)
  Receive Date: 20240123
  Receipt Date: 20240123
  Transmission Date: 20240410
  Serious: No
  Sender: FDA-Public Use
  Company Number: US-NOVOPROD-1119349

PATIENT
  Sex: Female

DRUGS (1)
  1. WEGOVY [Suspect]
     Active Substance: SEMAGLUTIDE
     Indication: Obesity
     Dosage: 2.4MG(ONGOING)
     Route: 058
     Dates: start: 20220118

REACTIONS (3)
  - Pain [Recovered/Resolved]
  - Device defective [Recovered/Resolved]
  - Device malfunction [Recovered/Resolved]
